FAERS Safety Report 20978935 (Version 1)
Quarter: 2022Q2

REPORT INFORMATION
  Report Type: Report from Study
  Country: US (occurrence: None)
  Receive Date: 20220619
  Receipt Date: 20220619
  Transmission Date: 20220721
  Serious: Yes (Hospitalization, Other)
  Sender: FDA-Public Use
  Company Number: US-ROCHE-2665681

PATIENT
  Age: 70 Year
  Sex: Female
  Weight: 86.9 kg

DRUGS (15)
  1. OBINUTUZUMAB [Suspect]
     Active Substance: OBINUTUZUMAB
     Indication: Mantle cell lymphoma
     Dosage: CYCLE 1: 100 MG IV DAY 1, 900 MG IV DAY 2, 1000 MG IV DAYS 8 + 15?CYCLES 2-6: 1000 MG IV DAY 1
     Route: 042
     Dates: start: 20200813, end: 20220525
  2. OBINUTUZUMAB [Suspect]
     Active Substance: OBINUTUZUMAB
     Route: 042
     Dates: start: 20200813, end: 20201208
  3. BENDAMUSTINE [Suspect]
     Active Substance: BENDAMUSTINE
     Indication: Mantle cell lymphoma
     Dosage: 90 MG/M2 IV DAYS 1 + 2 EVERY 28 DAYS X 4-6 CYCLES, LAST DAY BENDAMUSTINE TAKEN :01/JUN/2021
     Route: 042
     Dates: start: 20200813, end: 20200814
  4. BENDAMUSTINE [Suspect]
     Active Substance: BENDAMUSTINE
     Dosage: Q4 WEEKS D1 AND D2, LAST DATE OF THERAPY 06/JAN/2021
     Route: 042
     Dates: start: 20200813, end: 20201209
  5. ACYCLOVIR [Concomitant]
     Active Substance: ACYCLOVIR
     Dosage: TAKE 1 TABLET BY MOUTH 2 TIMES DAILY AT MORNING AND BEDTIME, ONGOING: YES
     Route: 048
     Dates: start: 20200813
  6. ALLOPURINOL [Concomitant]
     Active Substance: ALLOPURINOL
     Dosage: TAKE 1 TABLET BY MOUTH 1 TIME DAILY FOR 7 DAYS AT MORNING, ONGOING: NO
     Route: 048
     Dates: start: 20200814, end: 20200821
  7. FAMOTIDINE [Concomitant]
     Active Substance: FAMOTIDINE
     Dosage: TAKE 1 TABLET BY MOUTH 2 TIMES DAILY AT MORNING AND BED TIME, ONGOING: YES
     Route: 048
     Dates: start: 20200813
  8. ONDANSETRON HCL [Concomitant]
     Active Substance: ONDANSETRON HYDROCHLORIDE
     Indication: Nausea
     Dosage: TAKE 1 TABLET BY MOUTH EVERY 8 HOURS  AS NEEDED, ONGOING: YES
     Route: 048
     Dates: start: 20200814
  9. ONDANSETRON HCL [Concomitant]
     Active Substance: ONDANSETRON HYDROCHLORIDE
     Indication: Vomiting
     Dates: start: 20201208
  10. PROCHLORPERAZINE MALEATE [Concomitant]
     Active Substance: PROCHLORPERAZINE MALEATE
     Indication: Nausea
     Dosage: TAKE 1 TABLET BY MOUTH EVERY 6 HOURS AS NEEDED, ONGOING: YES
     Route: 048
     Dates: start: 20200812
  11. PROCHLORPERAZINE MALEATE [Concomitant]
     Active Substance: PROCHLORPERAZINE MALEATE
     Indication: Vomiting
  12. SULFAMETHOXAZOLE\TRIMETHOPRIM [Concomitant]
     Active Substance: SULFAMETHOXAZOLE\TRIMETHOPRIM
     Dosage: TAKE 1 TABLET BY MOUTH 2 TIMES DAILY ON SATURDAY AND SUNDAY AT MORNING AND EVENING, ONGOING: YES?800
     Dates: start: 20200813
  13. SULFAMETHOXAZOLE\TRIMETHOPRIM [Concomitant]
     Active Substance: SULFAMETHOXAZOLE\TRIMETHOPRIM
     Dosage: QOD ONGOING:YES
     Dates: start: 20201014
  14. POTASSIUM [Concomitant]
     Active Substance: POTASSIUM
     Dates: start: 20220603, end: 20220606
  15. SODIUM PHOSPHATE [Concomitant]
     Active Substance: SODIUM PHOSPHATE
     Dates: start: 20220603, end: 20220606

REACTIONS (4)
  - Infusion related reaction [Recovered/Resolved]
  - Infusion related reaction [Unknown]
  - Hypertension [Recovered/Resolved with Sequelae]
  - Gastroenteritis [Unknown]

NARRATIVE: CASE EVENT DATE: 20200813
